FAERS Safety Report 9485675 (Version 1)
Quarter: 2013Q3

REPORT INFORMATION
  Report Type: Spontaneous
  Country: CA (occurrence: CA)
  Receive Date: 20130829
  Receipt Date: 20130829
  Transmission Date: 20140515
  Serious: Yes (Other)
  Sender: FDA-Public Use
  Company Number: CA-JNJFOC-20130808947

PATIENT
  Age: 27 Year
  Sex: Female
  Weight: 54.43 kg

DRUGS (2)
  1. NICORETTE INHALER [Suspect]
     Indication: SMOKING CESSATION THERAPY
     Dosage: 1 CARTRIDGE, 6 PULLS
     Route: 055
     Dates: start: 20130813, end: 20130813
  2. LAMOTRIGINE [Concomitant]
     Indication: BIPOLAR DISORDER
     Route: 048

REACTIONS (5)
  - Buccal mucosal roughening [Recovering/Resolving]
  - Oropharyngeal pain [Recovering/Resolving]
  - Swollen tongue [Recovering/Resolving]
  - Hypoaesthesia oral [Recovering/Resolving]
  - Dysphagia [Recovering/Resolving]
